FAERS Safety Report 10640180 (Version 2)
Quarter: 2015Q1

REPORT INFORMATION
  Report Type: Spontaneous
  Country: US (occurrence: US)
  Receive Date: 20141209
  Receipt Date: 20150204
  Transmission Date: 20150720
  Serious: Yes (Other)
  Sender: FDA-Public Use
  Company Number: US-SA-2014SA168023

PATIENT
  Age: 50 Year
  Sex: Female
  Weight: 72.1 kg

DRUGS (7)
  1. FOLIC ACID. [Concomitant]
     Active Substance: FOLIC ACID
     Dosage: 5 MG SOLUTION ONCE DAILY, USE AS DIRECTED
  2. GABAPENTIN. [Concomitant]
     Active Substance: GABAPENTIN
     Dosage: AT BEDTIME AS DIRECTED
     Route: 048
  3. HECTOROL [Suspect]
     Active Substance: DOXERCALCIFEROL
     Indication: HYPERPARATHYROIDISM SECONDARY
     Route: 042
     Dates: start: 20141021, end: 20141021
  4. EPOGEN [Concomitant]
     Active Substance: ERYTHROPOIETIN
     Indication: ANAEMIA
     Dosage: DOSE:2000 UNIT(S)
     Route: 042
     Dates: start: 20141007
  5. VENOFER [Concomitant]
     Active Substance: IRON SUCROSE
     Indication: ANAEMIA
     Route: 042
     Dates: start: 20140612
  6. AMLODIPINE [Concomitant]
     Active Substance: AMLODIPINE BESYLATE
     Route: 048
  7. TRADJENTA [Concomitant]
     Active Substance: LINAGLIPTIN
     Route: 048

REACTIONS (7)
  - Seizure [Recovered/Resolved]
  - Muscular weakness [Unknown]
  - Hyperhidrosis [Unknown]
  - Tremor [Recovered/Resolved]
  - Hypersensitivity [Unknown]
  - Loss of consciousness [Recovered/Resolved]
  - Headache [Unknown]

NARRATIVE: CASE EVENT DATE: 20141021
